FAERS Safety Report 21285739 (Version 1)
Quarter: 2022Q3

REPORT INFORMATION
  Report Type: Spontaneous
  Country: US (occurrence: US)
  Receive Date: 20220902
  Receipt Date: 20220902
  Transmission Date: 20221026
  Serious: No
  Sender: FDA-Public Use
  Company Number: US-CELGENE-USA-20220206982

PATIENT
  Age: 66 Year
  Sex: Female

DRUGS (6)
  1. POMALYST [Suspect]
     Active Substance: POMALIDOMIDE
     Indication: Plasma cell myeloma
     Route: 048
     Dates: start: 201904
  2. POMALYST [Suspect]
     Active Substance: POMALIDOMIDE
     Route: 048
     Dates: start: 201905
  3. POMALYST [Suspect]
     Active Substance: POMALIDOMIDE
     Route: 048
     Dates: start: 202004
  4. POMALYST [Suspect]
     Active Substance: POMALIDOMIDE
     Route: 048
     Dates: start: 202007
  5. POMALYST [Suspect]
     Active Substance: POMALIDOMIDE
     Route: 048
     Dates: start: 202011
  6. POMALYST [Suspect]
     Active Substance: POMALIDOMIDE
     Dosage: ON DAYS 1-21 OF 28 DAY CYCLE
     Route: 048
     Dates: start: 20200430

REACTIONS (1)
  - White blood cell count decreased [Recovered/Resolved]
